FAERS Safety Report 5643944-5 (Version None)
Quarter: 2008Q1

REPORT INFORMATION
  Report Type: 
  Country: None (occurrence: None)
  Receive Date: 20080226
  Receipt Date: 20080214
  Transmission Date: 20080703
  Serious: Yes (Hospitalization)
  Sender: FDA-Public Use
  Company Number: CHPA2008US02717

PATIENT
  Age: 81 Year
  Sex: Female

DRUGS (2)
  1. PERDIEM OVERNIGHT RELIEF PILLS (NCH)(SENNA GLYCOSIDES (CA SALST OF PUR [Suspect]
     Indication: CONSTIPATION
     Dosage: 1-2 PILLS FOR LAST 10 YEARS, ORAL
     Route: 048
  2. ASPIRIN [Concomitant]

REACTIONS (3)
  - BLOOD CHOLESTEROL INCREASED [None]
  - DIVERTICULITIS [None]
  - INTENTIONAL DRUG MISUSE [None]
